FAERS Safety Report 25132328 (Version 2)
Quarter: 2025Q2

REPORT INFORMATION
  Report Type: Spontaneous
  Country: US (occurrence: US)
  Receive Date: 20250328
  Receipt Date: 20250403
  Transmission Date: 20250717
  Serious: Yes (Hospitalization, Other)
  Sender: GLENMARK
  Company Number: US-GLENMARK PHARMACEUTICALS-2025GMK098864

PATIENT
  Age: 77 Year
  Sex: Male

DRUGS (4)
  1. LACOSAMIDE [Interacting]
     Active Substance: LACOSAMIDE
     Indication: Seizure
     Route: 065
  2. FLECAINIDE [Interacting]
     Active Substance: FLECAINIDE
     Indication: Atrial fibrillation
     Route: 065
  3. TESSALON [Interacting]
     Active Substance: BENZONATATE
     Indication: Cough
     Route: 065
  4. APIXABAN [Concomitant]
     Active Substance: APIXABAN
     Indication: Atrial fibrillation
     Route: 065

REACTIONS (6)
  - Electrocardiogram QT prolonged [Recovered/Resolved]
  - Bundle branch block right [Recovered/Resolved]
  - Drug interaction [Recovered/Resolved]
  - Sinus bradycardia [Recovered/Resolved]
  - Toxicity to various agents [Recovered/Resolved]
  - Atrioventricular block first degree [Recovered/Resolved]
